FAERS Safety Report 19574519 (Version 3)
Quarter: 2022Q2

REPORT INFORMATION
  Report Type: Other
  Country: CA (occurrence: None)
  Receive Date: 20210719
  Receipt Date: 20220620
  Transmission Date: 20220720
  Serious: Yes (Other)
  Sender: FDA-Public Use
  Company Number: CA-ROCHE-2871959

PATIENT
  Age: 34 Year
  Sex: Female

DRUGS (4)
  1. PRALSETINIB [Suspect]
     Active Substance: PRALSETINIB
     Indication: Thyroid cancer
     Route: 048
     Dates: start: 20210519, end: 20210713
  2. DEXAMETHASONE [Concomitant]
     Active Substance: DEXAMETHASONE
     Indication: Fatigue
  3. THYROXINE [Concomitant]
     Active Substance: LEVOTHYROXINE
     Indication: Thyroid cancer
  4. LENVATINIB [Concomitant]
     Active Substance: LENVATINIB
     Dates: start: 20201009, end: 20210413

REACTIONS (4)
  - Deep vein thrombosis [Recovered/Resolved]
  - Pneumonitis [Unknown]
  - Disease progression [Unknown]
  - Drug ineffective [Unknown]

NARRATIVE: CASE EVENT DATE: 20210630
